FAERS Safety Report 12579543 (Version 1)
Quarter: 2016Q3

REPORT INFORMATION
  Report Type: Report from Study
  Country: TW (occurrence: TW)
  Receive Date: 20160721
  Receipt Date: 20160721
  Transmission Date: 20161109
  Serious: Yes (Hospitalization, Other)
  Sender: FDA-Public Use
  Company Number: TW-JNJFOC-20160708985

PATIENT
  Age: 43 Year
  Sex: Male
  Weight: 69.8 kg

DRUGS (5)
  1. STELARA [Suspect]
     Active Substance: USTEKINUMAB
     Indication: PSORIASIS
     Route: 058
     Dates: start: 20150102
  2. CYCLOSPORIN [Concomitant]
     Active Substance: CYCLOSPORINE
     Indication: PSORIASIS
     Dosage: DOSAGE ALSO REPORTED AS 200-300 MG/BID
     Route: 048
     Dates: start: 20160627, end: 20160704
  3. STELARA [Suspect]
     Active Substance: USTEKINUMAB
     Indication: PSORIASIS
     Route: 058
     Dates: end: 20160422
  4. KETOTIFEN [Concomitant]
     Active Substance: KETOTIFEN
     Indication: ANTIALLERGIC THERAPY
     Route: 048
     Dates: start: 20160627, end: 20160704
  5. SMECTA [Concomitant]
     Active Substance: MONTMORILLONITE
     Indication: GASTRIC DISORDER
     Route: 048
     Dates: start: 20160706

REACTIONS (4)
  - Ascites [Unknown]
  - Psoriasis [Not Recovered/Not Resolved]
  - Hepatic steatosis [Not Recovered/Not Resolved]
  - Hepatic cirrhosis [Unknown]

NARRATIVE: CASE EVENT DATE: 20160627
